FAERS Safety Report 7264229-X (Version None)
Quarter: 2011Q1

REPORT INFORMATION
  Report Type: 
  Country: None (occurrence: None)
  Receive Date: 20110131
  Receipt Date: 20110119
  Transmission Date: 20110831
  Serious: No
  Sender: FDA-Public Use
  Company Number: US-BIOGENIDEC-2011BI002313

PATIENT
  Age: 42 Year
  Sex: Female

DRUGS (2)
  1. NORTRYPTILINE [Concomitant]
     Indication: DEPRESSION
  2. TYSABRI [Suspect]
     Indication: MULTIPLE SCLEROSIS
     Route: 042
     Dates: start: 20101101

REACTIONS (3)
  - SENSATION OF HEAVINESS [None]
  - PARAESTHESIA [None]
  - HEADACHE [None]
